FAERS Safety Report 7409813-5 (Version None)
Quarter: 2011Q2

REPORT INFORMATION
  Report Type: 
  Country: None (occurrence: None)
  Receive Date: 20110412
  Receipt Date: 20110329
  Transmission Date: 20111010
  Serious: Yes (Other)
  Sender: FDA-Public Use
  Company Number: IN-GENENTECH-310519

PATIENT
  Age: 74 Year
  Sex: Male

DRUGS (2)
  1. FORACORT [Concomitant]
     Indication: PRODUCT USED FOR UNKNOWN INDICATION
  2. XOLAIR [Suspect]
     Indication: ASTHMA
     Dosage: 600 MG, Q2W
     Dates: start: 20100921

REACTIONS (8)
  - HEART RATE INCREASED [None]
  - HYPOACUSIS [None]
  - VERTIGO [None]
  - PYREXIA [None]
  - BLOOD PRESSURE INCREASED [None]
  - CHEST PAIN [None]
  - CARDIAC DISORDER [None]
  - HEADACHE [None]
